FAERS Safety Report 9448931 (Version 4)
Quarter: 2013Q3

REPORT INFORMATION
  Report Type: Spontaneous
  Country: US (occurrence: US)
  Receive Date: 20130808
  Receipt Date: 20130926
  Transmission Date: 20140515
  Serious: Yes (Other)
  Sender: FDA-Public Use
  Company Number: US-BAYER-2013-096139

PATIENT
  Age: 20 Year
  Sex: Female
  Weight: 80.73 kg

DRUGS (1)
  1. MIRENA [Suspect]
     Indication: CONTRACEPTION
     Dosage: 20 MCG/24HR, CONT
     Route: 015
     Dates: start: 20130423, end: 201307

REACTIONS (2)
  - Ectopic pregnancy [Recovered/Resolved]
  - Drug ineffective [None]
